FAERS Safety Report 14235678 (Version 1)
Quarter: 2017Q4

REPORT INFORMATION
  Report Type: Report from Study
  Country: None (occurrence: US)
  Receive Date: 20171129
  Receipt Date: 20171129
  Transmission Date: 20180321
  Serious: Yes (Other)
  Sender: FDA-Public Use
  Company Number: US-ABBVIE-17K-163-2168831-00

PATIENT
  Age: 60 Year
  Sex: Male
  Weight: 90.8 kg

DRUGS (1)
  1. HUMIRA [Suspect]
     Active Substance: ADALIMUMAB
     Indication: PSORIATIC ARTHROPATHY
     Route: 058
     Dates: start: 201410

REACTIONS (3)
  - Pain [Recovering/Resolving]
  - Hypertension [Not Recovered/Not Resolved]
  - Tendon rupture [Recovering/Resolving]

NARRATIVE: CASE EVENT DATE: 201601
